FAERS Safety Report 8878969 (Version 2)
Quarter: 2012Q4

REPORT INFORMATION
  Report Type: 
  Country: JP (occurrence: JP)
  Receive Date: 20121026
  Receipt Date: 20121109
  Transmission Date: 20130627
  Serious: Yes (Hospitalization)
  Sender: FDA-Public Use
  Company Number: JP-BRISTOL-MYERS SQUIBB COMPANY-17063652

PATIENT
  Age: 60 Year
  Sex: Female

DRUGS (3)
  1. ABILIFY TABS [Suspect]
     Indication: BIPOLAR DISORDER
     Route: 048
  2. SODIUM VALPROATE [Concomitant]
  3. LITHIUM CARBONATE [Concomitant]

REACTIONS (2)
  - Psychotic disorder [Unknown]
  - Diabetes mellitus inadequate control [Unknown]
